FAERS Safety Report 10844719 (Version 2)
Quarter: 2015Q2

REPORT INFORMATION
  Report Type: Spontaneous
  Country: IT (occurrence: IT)
  Receive Date: 20150220
  Receipt Date: 20150611
  Transmission Date: 20150821
  Serious: Yes (Hospitalization)
  Sender: FDA-Public Use
  Company Number: IT-NOVOPROD-438622

PATIENT
  Age: 85 Year
  Sex: Female

DRUGS (12)
  1. NORVASC [Suspect]
     Active Substance: AMLODIPINE BESYLATE
     Dosage: 20 MG, QD DOUBLE DOSE
     Route: 048
     Dates: start: 20150121, end: 20150121
  2. NOVONORM [Suspect]
     Active Substance: REPAGLINIDE
     Dosage: 4 MG, QD (DOUBLE DOSE)
     Route: 048
     Dates: start: 20150121, end: 20150121
  3. NORVASC [Suspect]
     Active Substance: AMLODIPINE BESYLATE
     Indication: PRODUCT USED FOR UNKNOWN INDICATION
     Dosage: 10 MG, QD
     Route: 048
  4. TORVAST [Suspect]
     Active Substance: ATORVASTATIN
     Dosage: 160 MG, QD DOUBLE DOSE
     Route: 048
     Dates: start: 20150121, end: 20150121
  5. CARDURA [Suspect]
     Active Substance: DOXAZOSIN MESYLATE
     Dosage: 16 MG, QD DOUBLE DOSE
     Route: 048
     Dates: start: 20150121, end: 20150121
  6. NOVONORM [Suspect]
     Active Substance: REPAGLINIDE
     Indication: PRODUCT USED FOR UNKNOWN INDICATION
     Dosage: 2 MG, QD
     Route: 048
  7. ATENOL [Suspect]
     Active Substance: ATENOLOL
     Indication: PRODUCT USED FOR UNKNOWN INDICATION
     Dosage: 100 MG, QD
     Route: 048
  8. ATENOL [Suspect]
     Active Substance: ATENOLOL
     Dosage: 200 MG, QD DOUBLE DOSE
     Route: 048
     Dates: start: 20150121, end: 20150121
  9. TRIATEC                            /00116401/ [Suspect]
     Active Substance: HYDROCHLOROTHIAZIDE
     Dosage: 20 MG, QD DOUBLE DOSE
     Route: 048
     Dates: start: 20150121, end: 20150121
  10. TORVAST [Suspect]
     Active Substance: ATORVASTATIN
     Indication: PRODUCT USED FOR UNKNOWN INDICATION
     Dosage: 80 MG, QD
     Route: 048
  11. TRIATEC                            /00116401/ [Suspect]
     Active Substance: HYDROCHLOROTHIAZIDE
     Indication: PRODUCT USED FOR UNKNOWN INDICATION
     Dosage: 10 MG, QD
     Route: 048
  12. CARDURA [Suspect]
     Active Substance: DOXAZOSIN MESYLATE
     Indication: PRODUCT USED FOR UNKNOWN INDICATION
     Dosage: 8 MG, QD
     Route: 048

REACTIONS (2)
  - Confusional state [Recovered/Resolved]
  - Drug abuse [Recovered/Resolved]

NARRATIVE: CASE EVENT DATE: 20150121
